FAERS Safety Report 5743408-4 (Version None)
Quarter: 2008Q2

REPORT INFORMATION
  Report Type: 
  Country: None (occurrence: None)
  Receive Date: 20080516
  Receipt Date: 20080516
  Transmission Date: 20081010
  Serious: No
  Sender: FDA-Public Use
  Company Number: None

PATIENT
  Sex: Female
  Weight: 54.8852 kg

DRUGS (1)
  1. LOTREL [Suspect]
     Indication: HYPERTENSION
     Dosage: 5/10 MG ONCE DAILY PO
     Route: 048
     Dates: start: 20071023

REACTIONS (2)
  - FEELING ABNORMAL [None]
  - MALAISE [None]
